FAERS Safety Report 16739027 (Version 1)
Quarter: 2019Q3

REPORT INFORMATION
  Report Type: Spontaneous
  Country: US (occurrence: US)
  Receive Date: 20190708
  Receipt Date: 20190708
  Transmission Date: 20191005
  Serious: Yes (Hospitalization)
  Sender: FDA-Public Use
  Company Number: None

PATIENT
  Age: 52 Year
  Sex: Male
  Weight: 77.56 kg

DRUGS (3)
  1. ESCITALOPRAM 20 MG DAILY [Suspect]
     Active Substance: ESCITALOPRAM OXALATE
     Indication: DEPRESSION
  2. ESCITALOPRAM 20 MG DAILY [Suspect]
     Active Substance: ESCITALOPRAM OXALATE
     Indication: ANXIETY
     Dates: start: 2011, end: 2014
  3. NEXIUM [Suspect]
     Active Substance: ESOMEPRAZOLE MAGNESIUM

REACTIONS (10)
  - Palpitations [None]
  - Fear [None]
  - Panic attack [None]
  - Anxiety [None]
  - Depression [None]
  - Hyperhidrosis [None]
  - Product substitution issue [None]
  - Sleep disorder [None]
  - Withdrawal syndrome [None]
  - Affect lability [None]

NARRATIVE: CASE EVENT DATE: 2014
